FAERS Safety Report 21126999 (Version 1)
Quarter: 2022Q3

REPORT INFORMATION
  Report Type: Report from Study
  Country: ES (occurrence: ES)
  Receive Date: 20220725
  Receipt Date: 20220725
  Transmission Date: 20221027
  Serious: Yes (Life-Threatening, Hospitalization)
  Sender: FDA-Public Use
  Company Number: None

PATIENT
  Age: 81 Year
  Sex: Male

DRUGS (5)
  1. AMOXICILLIN\CLAVULANIC ACID [Suspect]
     Active Substance: AMOXICILLIN\CLAVULANIC ACID
     Indication: Respiratory tract infection bacterial
     Route: 065
     Dates: start: 20220514, end: 20220517
  2. CEFTRIAXONE [Suspect]
     Active Substance: CEFTRIAXONE
     Indication: Respiratory tract infection bacterial
     Dosage: CEFTRIAXONE (501A), UNIT DOSE : 1 G, FREQUENCY TIME : 1 DAY, DURATION : 4 DAYS
     Route: 065
     Dates: start: 20220510, end: 20220513
  3. BEMIPARIN SODIUM [Suspect]
     Active Substance: BEMIPARIN SODIUM
     Indication: COVID-19
     Dosage: BEMIPARIN SODIUM (2817SO), UNIT DOSE : 3500IU, FREQUENCY TIME : 1 DAY, DURATION : 12 DAYS
     Route: 065
     Dates: start: 20220505, end: 20220516
  4. MYCOSTATIN [Suspect]
     Active Substance: NYSTATIN
     Indication: Oral candidiasis
     Dosage: STRENGTH :100,000 IU/ML , 1 BOTTLE OF 60 ML
     Route: 065
     Dates: start: 20220518, end: 20220524
  5. REMDESIVIR [Concomitant]
     Active Substance: REMDESIVIR
     Indication: COVID-19
     Dosage: REMDESIVIR (10009A), UNIT DOSE :100MG , FREQUENCY TIME : 1 DAY, DURATION : 6 DAYS
     Dates: start: 20220505, end: 20220510

REACTIONS (1)
  - Thrombocytopenia [Recovered/Resolved]

NARRATIVE: CASE EVENT DATE: 20220523
